FAERS Safety Report 19975992 (Version 1)
Quarter: 2021Q4

REPORT INFORMATION
  Report Type: Spontaneous
  Country: US (occurrence: US)
  Receive Date: 20211020
  Receipt Date: 20211020
  Transmission Date: 20220303
  Serious: No
  Sender: FDA-Public Use
  Company Number: US-ALLERGAN-2104985US

PATIENT
  Age: 65 Year
  Sex: Male

DRUGS (7)
  1. LINZESS [Suspect]
     Active Substance: LINACLOTIDE
     Indication: Constipation
     Dosage: ACTUAL: 290 ?G ORAL QD  AND ONE DAY  TOOK LINZESS, THEN TOOK AGAIN IN THE SAME EVENING
     Route: 048
     Dates: start: 202101
  2. METHADONE [Concomitant]
     Active Substance: METHADONE HYDROCHLORIDE
     Indication: Product used for unknown indication
     Dosage: UNK, QD
     Dates: start: 1996
  3. THYROID pill [Concomitant]
     Indication: Hypothyroidism
     Dosage: IN THE MORNING
  4. SALINE LAXATIVE [Concomitant]
     Active Substance: SODIUM PHOSPHATE, DIBASIC\SODIUM PHOSPHATE, MONOBASIC
     Dosage: UNK
     Dates: start: 202101
  5. prune juice [Concomitant]
     Dosage: 8 OZ THE NIGHT PRIOR TO MEDICATION
  6. UNSPECIFIED INGREDIENT [Concomitant]
     Active Substance: UNSPECIFIED INGREDIENT
     Indication: Blood pressure measurement
  7. UNSPECIFIED INGREDIENT [Concomitant]
     Active Substance: UNSPECIFIED INGREDIENT
     Indication: Blood cholesterol increased

REACTIONS (10)
  - Discomfort [Recovered/Resolved]
  - Depressed mood [Recovering/Resolving]
  - Rectal tenesmus [Recovered/Resolved]
  - Abnormal faeces [Recovered/Resolved]
  - Off label use [Unknown]
  - Intentional product misuse [Unknown]
  - Wrong technique in product usage process [Unknown]
  - Abdominal distension [Recovered/Resolved]
  - Therapeutic response decreased [Unknown]
  - Diarrhoea [Recovered/Resolved]

NARRATIVE: CASE EVENT DATE: 20210101
